FAERS Safety Report 24555780 (Version 2)
Quarter: 2024Q4

REPORT INFORMATION
  Report Type: Spontaneous
  Country: CN (occurrence: CN)
  Receive Date: 20241028
  Receipt Date: 20241124
  Transmission Date: 20250115
  Serious: Yes (Hospitalization, Disabling)
  Sender: NOVO NORDISK
  Company Number: CN-NOVOPROD-1302565

PATIENT
  Age: 78 Year
  Sex: Male
  Weight: 66 kg

DRUGS (3)
  1. NOVORAPID [Suspect]
     Active Substance: INSULIN ASPART
     Indication: Diabetes mellitus inadequate control
     Dosage: 64-65 UNITS
  2. INSULIN DETEMIR [Suspect]
     Active Substance: INSULIN DETEMIR
     Indication: Diabetes mellitus inadequate control
     Dosage: 22-23 UNITS
  3. DULAGLUTIDE [Concomitant]
     Active Substance: DULAGLUTIDE
     Indication: Product used for unknown indication
     Dosage: ONCE A WEEK, 1 VIAL EACH TIME

REACTIONS (3)
  - Coronary artery bypass [Recovered/Resolved]
  - Blindness [Unknown]
  - Nerve stimulation test abnormal [Unknown]

NARRATIVE: CASE EVENT DATE: 20110101
